FAERS Safety Report 8615424-6 (Version None)
Quarter: 2012Q3

REPORT INFORMATION
  Report Type: 
  Country: None (occurrence: None)
  Receive Date: 20120823
  Receipt Date: 20120816
  Transmission Date: 20120928
  Serious: Yes (Other)
  Sender: FDA-Public Use
  Company Number: US-JNJFOC-20120809640

PATIENT
  Sex: Male
  Weight: 50.8 kg

DRUGS (3)
  1. REMICADE [Suspect]
     Indication: CROHN'S DISEASE
     Route: 042
     Dates: start: 20120629
  2. BUTALBITAL [Concomitant]
     Indication: PREMEDICATION
     Dosage: PREMEDICATON FOR INFUSION ON 29-JUN-2012
     Dates: start: 20120601, end: 20120701
  3. REMICADE [Suspect]
     Dosage: INITIAL INFUSION
     Route: 042
     Dates: start: 20120615

REACTIONS (2)
  - HEADACHE [None]
  - MIGRAINE WITH AURA [None]
